FAERS Safety Report 7340049-2 (Version None)
Quarter: 2011Q1

REPORT INFORMATION
  Report Type: 
  Country: None (occurrence: None)
  Receive Date: 20110309
  Receipt Date: 20110223
  Transmission Date: 20110831
  Serious: Yes (Hospitalization, Other)
  Sender: FDA-Public Use
  Company Number: US-BAYER-2010-006227

PATIENT
  Sex: Male

DRUGS (4)
  1. BETASERON [Suspect]
     Indication: MULTIPLE SCLEROSIS
     Dosage: 8 MIU QOD
     Route: 058
     Dates: start: 20100128, end: 20101212
  2. METOPROLOL [Concomitant]
     Dosage: 25 MG, BID
  3. CALCIUM [Concomitant]
     Dosage: DAILY DOSE 600 MG
  4. VITAMIN D [Concomitant]
     Dosage: DAILY DOSE 1000 IU

REACTIONS (5)
  - DYSPEPSIA [None]
  - MUSCULOSKELETAL PAIN [None]
  - FATIGUE [None]
  - CORONARY ARTERY BYPASS [None]
  - CARDIAC DISORDER [None]
